FAERS Safety Report 14471582 (Version 2)
Quarter: 2018Q1

REPORT INFORMATION
  Report Type: Spontaneous
  Country: JP (occurrence: JP)
  Receive Date: 20180131
  Receipt Date: 20180226
  Transmission Date: 20180509
  Serious: Yes (Hospitalization)
  Sender: FDA-Public Use
  Company Number: JP-PFIZER INC-2018036706

PATIENT
  Age: 68 Year
  Sex: Female
  Weight: 50 kg

DRUGS (7)
  1. IBRANCE [Suspect]
     Active Substance: PALBOCICLIB
     Indication: BREAST CANCER RECURRENT
     Dosage: 125 MG, 1X/DAY
     Route: 048
     Dates: start: 20180115, end: 20180122
  2. FASLODEX [Concomitant]
     Active Substance: FULVESTRANT
     Indication: BREAST CANCER RECURRENT
     Dosage: 500 MG, 1X/DAY
     Route: 030
     Dates: start: 20180115
  3. DICLOPHENAC [Concomitant]
     Active Substance: DICLOFENAC SODIUM
     Dosage: 25 MG, 2X/DAY
     Route: 054
     Dates: start: 20180115
  4. BETAMETHASONE. [Concomitant]
     Active Substance: BETAMETHASONE
     Dosage: 0.5 MG, 2X/DAY
     Route: 048
     Dates: start: 20180104
  5. DENOTAS [Concomitant]
     Active Substance: CALCIUM CARBONATE\CHOLECALCIFEROL\MAGNESIUM CARBONATE
     Dosage: 2 DF, 1X/DAY
     Route: 048
     Dates: start: 20180115
  6. TRAMAL [Concomitant]
     Active Substance: TRAMADOL
     Dosage: 25 MG, 4X/DAY
     Route: 048
     Dates: start: 20180115
  7. RANMARK [Concomitant]
     Active Substance: DENOSUMAB
     Dosage: 120 MG, 1X/DAY
     Route: 058
     Dates: start: 20180115

REACTIONS (3)
  - Chest pain [Unknown]
  - Deep vein thrombosis [Not Recovered/Not Resolved]
  - Pulmonary embolism [Not Recovered/Not Resolved]

NARRATIVE: CASE EVENT DATE: 20180119
